FAERS Safety Report 8125773-6 (Version None)
Quarter: 2012Q1

REPORT INFORMATION
  Report Type: 
  Country: None (occurrence: None)
  Receive Date: 20120209
  Receipt Date: 20120208
  Transmission Date: 20120608
  Serious: Yes (Other)
  Sender: FDA-Public Use
  Company Number: US-BAYER-2012-013009

PATIENT
  Age: 29 Year
  Sex: Female
  Weight: 48.073 kg

DRUGS (5)
  1. LIVER EXTRACT [Concomitant]
     Dosage: 500 MG, UNK
  2. VITAMIN E [Concomitant]
     Dosage: 800 UNITS
  3. BETASERON [Suspect]
     Dosage: 0.25 MG, QOD
     Route: 058
  4. IBUPROFEN (ADVIL) [Concomitant]
     Dosage: 200 MG, UNK
  5. VITAMIN D [Concomitant]

REACTIONS (7)
  - CHILLS [None]
  - RHABDOMYOLYSIS [None]
  - HERNIA [None]
  - INFLUENZA [None]
  - HEADACHE [None]
  - ABDOMINAL PAIN LOWER [None]
  - POOR PERIPHERAL CIRCULATION [None]
